FAERS Safety Report 10727660 (Version 1)
Quarter: 2015Q1

REPORT INFORMATION
  Report Type: Spontaneous
  Country: DK (occurrence: DE)
  Receive Date: 20150121
  Receipt Date: 20150121
  Transmission Date: 20150721
  Serious: Yes (Other)
  Sender: FDA-Public Use
  Company Number: DE-FRI-1000073764

PATIENT
  Age: 35 Year
  Sex: Female

DRUGS (4)
  1. RITALIN [Suspect]
     Active Substance: METHYLPHENIDATE HYDROCHLORIDE
     Indication: NARCOLEPSY
     Dosage: 60 MG
     Route: 048
     Dates: start: 20140307, end: 20141118
  2. BROMAZEPAM [Suspect]
     Active Substance: BROMAZEPAM
     Indication: POST-TRAUMATIC STRESS DISORDER
     Dosage: 6 MG
     Route: 048
     Dates: start: 20140307, end: 20141118
  3. CITALOPRAM [Suspect]
     Active Substance: CITALOPRAM HYDROBROMIDE
     Indication: POST-TRAUMATIC STRESS DISORDER
     Dosage: OVERDOSE: 60 MG /DAY
     Route: 048
     Dates: start: 20140307, end: 20141118
  4. L-THYROXIN [Concomitant]
     Active Substance: LEVOTHYROXINE SODIUM
     Indication: HYPOTHYROIDISM
     Dosage: 50 MCG
     Route: 048
     Dates: start: 20140307, end: 20141118

REACTIONS (4)
  - Pre-eclampsia [Recovered/Resolved]
  - Pregnancy [Recovered/Resolved]
  - Off label use [Recovered/Resolved]
  - Prescribed overdose [Recovered/Resolved]

NARRATIVE: CASE EVENT DATE: 20140307
